FAERS Safety Report 9790666 (Version 3)
Quarter: 2014Q1

REPORT INFORMATION
  Report Type: Spontaneous
  Country: DE (occurrence: DE)
  Receive Date: 20131231
  Receipt Date: 20140131
  Transmission Date: 20141002
  Serious: Yes (Other)
  Sender: FDA-Public Use
  Company Number: DE-BRISTOL-MYERS SQUIBB COMPANY-19946656

PATIENT
  Age: 67 Year
  Sex: Female
  Weight: 66 kg

DRUGS (4)
  1. ELIQUIS [Suspect]
     Indication: ATRIAL FIBRILLATION
     Dosage: TABS,?INTERRUPTED ON 16DEC13
     Route: 048
     Dates: start: 201304
  2. ELIQUIS [Suspect]
     Indication: TRANSIENT ISCHAEMIC ATTACK
     Dosage: TABS,?INTERRUPTED ON 16DEC13
     Route: 048
     Dates: start: 201304
  3. METOPROLOL [Concomitant]
     Route: 048
  4. SIMVASTATIN [Concomitant]
     Route: 048

REACTIONS (1)
  - Pericardial effusion [Unknown]
